FAERS Safety Report 9615749 (Version 2)
Quarter: 2013Q4

REPORT INFORMATION
  Report Type: Spontaneous
  Country: US (occurrence: US)
  Receive Date: 20131011
  Receipt Date: 20131011
  Transmission Date: 20140711
  Serious: Yes (Other)
  Sender: FDA-Public Use
  Company Number: US-NAPPMUNDI-USA-2013-0098856

PATIENT
  Age: 52 Year
  Sex: Female
  Weight: 77.1 kg

DRUGS (3)
  1. BUTRANS [Suspect]
     Indication: BACK PAIN
     Dosage: 20 MCG/HR, DAILY
     Route: 062
     Dates: start: 20130205, end: 20130206
  2. BUTRANS [Suspect]
     Indication: NECK PAIN
  3. SYNTHROID [Concomitant]
     Indication: PRODUCT USED FOR UNKNOWN INDICATION
     Dosage: 1.75 MCG, DAILY

REACTIONS (9)
  - Vomiting [Unknown]
  - Hypokinesia [Unknown]
  - Musculoskeletal disorder [Unknown]
  - Tremor [Unknown]
  - Unevaluable event [Unknown]
  - Malaise [Unknown]
  - Asthenia [Unknown]
  - Somnolence [Unknown]
  - Drug hypersensitivity [Unknown]
